FAERS Safety Report 19666599 (Version 1)
Quarter: 2021Q3

REPORT INFORMATION
  Report Type: Spontaneous
  Country: US (occurrence: US)
  Receive Date: 20210806
  Receipt Date: 20210806
  Transmission Date: 20211014
  Serious: Yes (Hospitalization)
  Sender: FDA-Public Use
  Company Number: None

PATIENT
  Age: 76 Year
  Sex: Male
  Weight: 113.4 kg

DRUGS (13)
  1. METOPROLOL TARTRATE. [Concomitant]
     Active Substance: METOPROLOL TARTRATE
     Dates: start: 20091015
  2. REGEN?COV [Suspect]
     Active Substance: CASIRIVIMAB\IMDEVIMAB
     Indication: COVID-19
     Dosage: ?          OTHER FREQUENCY:ONCE;?
     Route: 041
     Dates: start: 20210730, end: 20210730
  3. APIXABAN [Concomitant]
     Active Substance: APIXABAN
     Dates: start: 20161011
  4. EPLERENONE. [Concomitant]
     Active Substance: EPLERENONE
     Dates: start: 20191007
  5. MINOXIDIL. [Concomitant]
     Active Substance: MINOXIDIL
     Dates: start: 20190626
  6. ASPIRIN CHEWABLE [Concomitant]
     Active Substance: ASPIRIN
     Dates: start: 20080211
  7. BENAZEPRIL [Concomitant]
     Active Substance: BENAZEPRIL HYDROCHLORIDE
     Dates: start: 20210308
  8. DOXAZOSIN [Concomitant]
     Active Substance: DOXAZOSIN MESYLATE
     Dates: start: 20090909
  9. TORSEMIDE. [Concomitant]
     Active Substance: TORSEMIDE
     Dates: start: 20191202
  10. HUMULOG INSULIN [Concomitant]
     Dates: start: 20210804
  11. ALLOPURINOL. [Concomitant]
     Active Substance: ALLOPURINOL
     Dates: start: 20210611
  12. LANTUS SOLOSTAR [Concomitant]
     Active Substance: INSULIN GLARGINE
     Dates: start: 20210804
  13. METFORMIN [Concomitant]
     Active Substance: METFORMIN HYDROCHLORIDE
     Dates: start: 20130306

REACTIONS (12)
  - Oxygen saturation decreased [None]
  - COVID-19 pneumonia [None]
  - Hypoxia [None]
  - Dyspnoea [None]
  - Chest discomfort [None]
  - Headache [None]
  - Rhinorrhoea [None]
  - Infection [None]
  - Acute respiratory failure [None]
  - Pain [None]
  - Heart rate increased [None]
  - Body temperature increased [None]

NARRATIVE: CASE EVENT DATE: 20210730
